FAERS Safety Report 18142422 (Version 6)
Quarter: 2020Q4

REPORT INFORMATION
  Report Type: Report from Study
  Country: FR (occurrence: FR)
  Receive Date: 20200812
  Receipt Date: 20201228
  Transmission Date: 20210113
  Serious: Yes (Hospitalization, Other)
  Sender: FDA-Public Use
  Company Number: FR-BRISTOL-MYERS SQUIBB COMPANY-BMS-2020-063606

PATIENT
  Age: 73 Year
  Sex: Male
  Weight: 60 kg

DRUGS (18)
  1. CISPLATIN. [Suspect]
     Active Substance: CISPLATIN
     Indication: SQUAMOUS CELL CARCINOMA OF HEAD AND NECK
     Dosage: 172 MILLIGRAM
     Route: 065
     Dates: start: 20191114
  2. TIORFAN [Concomitant]
     Active Substance: RACECADOTRIL
     Indication: DIARRHOEA
     Dosage: 100 MILLIGRAM, QD
     Route: 048
     Dates: start: 20200726, end: 20200811
  3. FLAGYL [Concomitant]
     Active Substance: METRONIDAZOLE\METRONIDAZOLE HYDROCHLORIDE
     Indication: DIARRHOEA
     Dosage: 500 MILLIGRAM, QD
     Route: 048
     Dates: start: 20200825, end: 20200831
  4. LOVENOX [LEVOFLOXACIN] [Concomitant]
     Active Substance: LEVOFLOXACIN
     Indication: DIARRHOEA
     Dosage: 4000 INTERNATIONAL UNIT, QD
     Route: 058
     Dates: start: 20200824, end: 20200827
  5. PLITICAN [Concomitant]
     Active Substance: ALIZAPRIDE HYDROCHLORIDE
     Indication: VOMITING
  6. PARACETAMOL [Concomitant]
     Active Substance: ACETAMINOPHEN
     Indication: PAIN
     Dosage: L0MG/ML, MAXIMUM 3 TIMES A DAY
     Route: 042
     Dates: start: 20200725, end: 20200811
  7. NIVOLUMAB [Suspect]
     Active Substance: NIVOLUMAB
     Dosage: 480 MILLIGRAM
     Route: 065
     Dates: start: 20200128
  8. PARACETAMOL [Concomitant]
     Active Substance: ACETAMINOPHEN
     Dosage: MAXIMUM 4 TIMES A DAY
     Route: 042
     Dates: start: 20200823, end: 20200829
  9. SMECTA [Concomitant]
     Active Substance: MONTMORILLONITE
     Dosage: SACHETS IN THE MORNING, NOON, EVENING AS NEEDED
     Route: 048
     Dates: start: 20200825, end: 20200827
  10. IMODIUM [Concomitant]
     Active Substance: LOPERAMIDE HYDROCHLORIDE
     Indication: DIARRHOEA
     Dosage: 2 MILLIGRAM, TID
     Route: 048
     Dates: start: 20200825, end: 20200827
  11. NIVOLUMAB [Suspect]
     Active Substance: NIVOLUMAB
     Dosage: 360 MILLIGRAM
     Route: 065
     Dates: start: 20191113, end: 20191226
  12. CISPLATIN. [Suspect]
     Active Substance: CISPLATIN
     Dosage: 128 MILLIGRAM
     Route: 065
     Dates: start: 20191219
  13. PLITICAN [Concomitant]
     Active Substance: ALIZAPRIDE HYDROCHLORIDE
     Indication: NAUSEA
  14. SMECTA [Concomitant]
     Active Substance: MONTMORILLONITE
     Indication: DIARRHOEA
     Dosage: 1 DOSAGE FORM, TID
     Route: 048
     Dates: start: 20200726, end: 20200811
  15. ULTRA-LEVURE [Concomitant]
     Active Substance: SACCHAROMYCES CEREVISIAE
     Indication: DIARRHOEA
     Dosage: 50 MILLIGRAM, BID
     Route: 048
     Dates: start: 20200726, end: 20200811
  16. HUMALOG [Concomitant]
     Active Substance: INSULIN LISPRO
     Indication: PRODUCT USED FOR UNKNOWN INDICATION
     Dosage: 2 TO 6 IU 8 TIMES A DAY ACCORDING TO PROTOCOL
     Route: 058
     Dates: start: 20200807, end: 20200811
  17. NIVOLUMAB [Suspect]
     Active Substance: NIVOLUMAB
     Indication: SQUAMOUS CELL CARCINOMA OF HEAD AND NECK
     Dosage: 240 MILLIGRAM
     Route: 065
     Dates: start: 20191025
  18. PRIMPERAN [Concomitant]
     Active Substance: METOCLOPRAMIDE HYDROCHLORIDE
     Indication: DIARRHOEA
     Dosage: 1 DOSAGE FORM, TID
     Route: 042
     Dates: start: 20200823, end: 20200827

REACTIONS (7)
  - Device related infection [Recovered/Resolved]
  - Thrombocytopenia [Unknown]
  - Leukopenia [Unknown]
  - Staphylococcal infection [Recovered/Resolved]
  - Staphylococcal sepsis [Unknown]
  - Anaemia [Unknown]
  - Lymphangitis [Unknown]

NARRATIVE: CASE EVENT DATE: 20200724
